FAERS Safety Report 23572473 (Version 1)
Quarter: 2024Q1

REPORT INFORMATION
  Report Type: Spontaneous
  Country: CH (occurrence: CH)
  Receive Date: 20240227
  Receipt Date: 20240227
  Transmission Date: 20240410
  Serious: Yes (Other)
  Sender: FDA-Public Use
  Company Number: CH-009507513-2402CHE008441

PATIENT
  Age: 73 Year
  Sex: Male

DRUGS (3)
  1. PEMBROLIZUMAB [Suspect]
     Active Substance: PEMBROLIZUMAB
     Indication: Lung squamous cell carcinoma metastatic
     Dosage: 200 MILLIGRAM, Q3W
     Route: 042
     Dates: start: 20220726, end: 20230525
  2. PACLITAXEL [Suspect]
     Active Substance: PACLITAXEL
     Indication: Lung squamous cell carcinoma metastatic
     Dosage: UNK, CYCLICAL
     Route: 042
     Dates: start: 20220726, end: 20230525
  3. CARBOPLATIN [Suspect]
     Active Substance: CARBOPLATIN
     Indication: Lung squamous cell carcinoma metastatic
     Dosage: AUC 6 BY IV INFUSION ON DAY 1 OF EACH 21-DAY CYCLE FOR 4 CYCLES
     Route: 042
     Dates: start: 20220726, end: 202310

REACTIONS (2)
  - Hepatic cancer [Unknown]
  - Malignant neoplasm progression [Unknown]
